FAERS Safety Report 9261406 (Version 2)
Quarter: 2013Q2

REPORT INFORMATION
  Report Type: Spontaneous
  Country: AU (occurrence: AU)
  Receive Date: 20130429
  Receipt Date: 20130528
  Transmission Date: 20140414
  Serious: Yes (Death, Hospitalization, Other)
  Sender: FDA-Public Use
  Company Number: AU-B.I. PHARMACEUTICALS,INC./RIDGEFIELD-2013-AU-00509AU

PATIENT
  Age: 85 Year
  Sex: Female

DRUGS (10)
  1. PRADAXA [Suspect]
     Indication: CEREBROVASCULAR ACCIDENT PROPHYLAXIS
     Dosage: 220 MG
     Route: 048
     Dates: start: 20110824
  2. PRADAXA [Suspect]
     Indication: ATRIAL FIBRILLATION
  3. AMIODARONE [Concomitant]
     Indication: ATRIAL FIBRILLATION
     Dosage: 200 MG
     Route: 048
  4. HYDOPA [Concomitant]
     Indication: HYPERTENSION
     Dosage: 500 MG
     Route: 048
  5. OROXINE [Concomitant]
     Indication: HYPOTHYROIDISM
     Dosage: 100 MCG
     Route: 048
  6. KARVEA [Concomitant]
     Indication: HYPERTENSION
     Dosage: 300 MG
     Route: 048
  7. GLUCOSAMINE HYDROCHLORIDE [Concomitant]
     Indication: KNEE ARTHROPLASTY
     Dosage: 1500 MG
     Route: 048
  8. ORDINE [Concomitant]
     Indication: ABDOMINAL PAIN
     Dosage: 2 MG/ML
     Route: 048
  9. OSTELIN VITAMIN D [Concomitant]
     Indication: VITAMIN D DEFICIENCY
     Dosage: 1000 U
     Route: 048
  10. PANADOL OSTEO [Concomitant]
     Indication: KNEE ARTHROPLASTY
     Dosage: 3990 MG
     Route: 048

REACTIONS (9)
  - Cholangiocarcinoma [Fatal]
  - Fall [Unknown]
  - Weight decreased [Unknown]
  - Liver function test abnormal [Unknown]
  - Anaemia [Unknown]
  - Urge incontinence [Unknown]
  - Oedema peripheral [Unknown]
  - Steatorrhoea [Unknown]
  - Hepatic failure [Unknown]
